FAERS Safety Report 9012463 (Version 2)
Quarter: 2013Q1

REPORT INFORMATION
  Report Type: Spontaneous
  Country: BY (occurrence: BY)
  Receive Date: 20130114
  Receipt Date: 20130122
  Transmission Date: 20140127
  Serious: Yes (Hospitalization)
  Sender: FDA-Public Use
  Company Number: BY-PFIZER INC-2013010842

PATIENT
  Sex: Male

DRUGS (2)
  1. CARDURA [Suspect]
     Indication: BENIGN PROSTATIC HYPERPLASIA
     Dosage: 4 MG, 1X/DAY
     Route: 048
     Dates: start: 2003, end: 20120813
  2. CARDURA [Suspect]
     Indication: PROSTATIC ADENOMA

REACTIONS (8)
  - Ileus [Unknown]
  - Anaemia [Not Recovered/Not Resolved]
  - Colon neoplasm [Unknown]
  - Inguinal hernia [Unknown]
  - Headache [Recovered/Resolved]
  - Dizziness [Not Recovered/Not Resolved]
  - Fatigue [Not Recovered/Not Resolved]
  - Malaise [Not Recovered/Not Resolved]
